FAERS Safety Report 8896612 (Version 2)
Quarter: 2013Q1

REPORT INFORMATION
  Report Type: Spontaneous
  Country: US (occurrence: None)
  Receive Date: 20121101
  Receipt Date: 20130205
  Transmission Date: 20140127
  Serious: Yes (Other)
  Sender: FDA-Public Use
  Company Number: 1210-579

PATIENT
  Age: 78 Year
  Sex: Male

DRUGS (1)
  1. EYLEA [Suspect]
     Indication: AGE-RELATED MACULAR DEGENERATION
     Dosage: 7  MONTHS,  2  WEEKS 1 IN 4 WK, INTRAVITREAL

REACTIONS (2)
  - Corneal bleeding [None]
  - Retinal haemorrhage [None]
